FAERS Safety Report 6286995-2 (Version None)
Quarter: 2009Q3

REPORT INFORMATION
  Report Type: 
  Country: None (occurrence: None)
  Receive Date: 20090728
  Receipt Date: 20090604
  Transmission Date: 20100115
  Serious: Yes (Hospitalization, Other)
  Sender: FDA-Public Use
  Company Number: US-PURDUE-USA-2009-0038680

PATIENT
  Sex: Female
  Weight: 156 kg

DRUGS (1)
  1. OXYCONTIN [Suspect]
     Indication: ANALGESIA
     Dosage: 20 MG, TID
     Dates: start: 20020805, end: 20030706

REACTIONS (4)
  - DRUG REHABILITATION [None]
  - GALLBLADDER OPERATION [None]
  - GENERAL PHYSICAL HEALTH DETERIORATION [None]
  - MEMORY IMPAIRMENT [None]
